FAERS Safety Report 9070466 (Version 2)
Quarter: 2013Q2

REPORT INFORMATION
  Report Type: Spontaneous
  Country: BE (occurrence: BE)
  Receive Date: 20130215
  Receipt Date: 20130523
  Transmission Date: 20140414
  Serious: Yes (Other)
  Sender: FDA-Public Use
  Company Number: BE-JNJFOC-20130204618

PATIENT
  Age: 66 Year
  Sex: Female
  Weight: 61 kg

DRUGS (2)
  1. SIMPONI [Suspect]
     Indication: RHEUMATOID ARTHRITIS
     Dosage: TOTAL OF 23 INJECTIONS
     Route: 058
     Dates: start: 20101203, end: 20121217
  2. METHOTREXATE [Concomitant]
     Indication: PRODUCT USED FOR UNKNOWN INDICATION
     Dosage: START/STOP DATE  2008
     Route: 065
     Dates: start: 2008

REACTIONS (1)
  - Intraductal proliferative breast lesion [Recovering/Resolving]
